FAERS Safety Report 10019710 (Version 2)
Quarter: 2014Q2

REPORT INFORMATION
  Report Type: Spontaneous
  Country: US (occurrence: US)
  Receive Date: 20140318
  Receipt Date: 20140618
  Transmission Date: 20141212
  Serious: No
  Sender: FDA-Public Use
  Company Number: US-GALDERMA-US14000474

PATIENT
  Age: 43 Year
  Sex: Female

DRUGS (7)
  1. MIRVASO (BRIMONIDINE) TOPICAL GEL, 0.33% [Suspect]
     Indication: ROSACEA
     Dosage: 0.33%
     Route: 061
     Dates: start: 20131219, end: 20140121
  2. NEUTROGENA SENSITIVIE SKIN CLEANSER [Concomitant]
     Indication: THERAPEUTIC SKIN CARE TOPICAL
     Route: 061
     Dates: start: 2011
  3. CLINIQUE MOISTURIZER [Concomitant]
     Indication: DRY SKIN PROPHYLAXIS
     Route: 061
  4. ALMAY POWDER FOUNDATION [Concomitant]
     Indication: THERAPEUTIC SKIN CARE TOPICAL
     Route: 061
     Dates: start: 2012
  5. FINACEA [Concomitant]
     Dosage: 15%
     Route: 061
     Dates: start: 2011
  6. MAYBELLINE SHINE FREE LOOSE POWDER [Concomitant]
     Route: 061
     Dates: start: 2012
  7. CENTRUM MULTIVITAMIN [Concomitant]
     Route: 048
     Dates: start: 2000

REACTIONS (7)
  - Condition aggravated [Recovered/Resolved]
  - Feeling hot [Recovered/Resolved]
  - Skin burning sensation [Recovered/Resolved]
  - Erythema [Recovered/Resolved]
  - Flushing [Recovered/Resolved]
  - Off label use [Recovered/Resolved]
  - Drug effect decreased [Recovered/Resolved]
